FAERS Safety Report 19877968 (Version 1)
Quarter: 2021Q3

REPORT INFORMATION
  Report Type: Spontaneous
  Country: CN (occurrence: CN)
  Receive Date: 20210923
  Receipt Date: 20210923
  Transmission Date: 20211014
  Serious: Yes (Hospitalization)
  Sender: FDA-Public Use
  Company Number: CN-PFIZER INC-202101206693

PATIENT
  Age: 63 Year
  Sex: Female
  Weight: 63 kg

DRUGS (3)
  1. MEROPENEM. [Suspect]
     Active Substance: MEROPENEM
     Indication: INTRACRANIAL INFECTION
     Dosage: 2 G, 3X/DAY
     Route: 041
     Dates: start: 20201207, end: 20201222
  2. ZYVOX [Suspect]
     Active Substance: LINEZOLID
     Indication: INTRACRANIAL INFECTION
     Dosage: 600 MG, 2X/DAY
     Route: 041
     Dates: start: 20201211, end: 20201222
  3. VANCOCIN [Suspect]
     Active Substance: VANCOMYCIN HYDROCHLORIDE
     Indication: INTRACRANIAL INFECTION
     Dosage: 1 G, 2X/DAY
     Route: 041
     Dates: start: 20201206, end: 20201211

REACTIONS (3)
  - Candida infection [Recovered/Resolved]
  - Off label use [Unknown]
  - Dysbiosis [Recovered/Resolved]

NARRATIVE: CASE EVENT DATE: 20201211
